FAERS Safety Report 8495188-X (Version None)
Quarter: 2012Q3

REPORT INFORMATION
  Report Type: 
  Country: None (occurrence: None)
  Receive Date: 20120709
  Receipt Date: 20120627
  Transmission Date: 20120928
  Serious: No
  Sender: FDA-Public Use
  Company Number: JP-MSD JAPAN-1207USA00049

PATIENT

DRUGS (2)
  1. FOSAMAX [Suspect]
     Dosage: 35 MG, QW
     Route: 048
     Dates: start: 20120626, end: 20120626
  2. FOSAMAX [Suspect]
     Dosage: 35 MG, QD
     Route: 048
     Dates: start: 20120627, end: 20120627

REACTIONS (3)
  - NAUSEA [None]
  - DIZZINESS [None]
  - MEDICATION ERROR [None]
